FAERS Safety Report 10428758 (Version 20)
Quarter: 2017Q1

REPORT INFORMATION
  Report Type: Report from Study
  Country: US (occurrence: US)
  Receive Date: 20140903
  Receipt Date: 20170324
  Transmission Date: 20170428
  Serious: Yes (Hospitalization, Other)
  Sender: FDA-Public Use
  Company Number: US-UCBSA-2014010474

PATIENT
  Age: 54 Year
  Sex: Female
  Weight: 130 kg

DRUGS (36)
  1. CENTRUM [Concomitant]
     Active Substance: VITAMINS
     Dosage: 4 DF, ONCE DAILY (QD)
     Route: 048
  2. PROAIR HFA [Concomitant]
     Active Substance: ALBUTEROL SULFATE
     Indication: PRODUCT USED FOR UNKNOWN INDICATION
     Dosage: 90 MCG PER PUFFS EVERY 4 HOURS, INHALER
  3. ATENOLOL. [Concomitant]
     Active Substance: ATENOLOL
     Dosage: DOSE: 25 MG
     Route: 048
  4. CIMETIDINE [Concomitant]
     Active Substance: CIMETIDINE
     Indication: GASTROOESOPHAGEAL REFLUX DISEASE
     Dosage: 20 MG, ONCE DAILY (QD)
     Route: 048
  5. ASPIRIN. [Concomitant]
     Active Substance: ASPIRIN
     Indication: PRODUCT USED FOR UNKNOWN INDICATION
     Dosage: 81 MG, ONCE DAILY (QD)
     Route: 048
  6. IRON [Concomitant]
     Active Substance: IRON
     Indication: ANAEMIA
     Dosage: 325 MG, UNK (ON AND OFF), DAILY
     Route: 048
  7. TYLENOL [Concomitant]
     Active Substance: ACETAMINOPHEN
     Indication: PAIN
     Dosage: UNK, AS NEEDED (PRN)
  8. PREDNISONE. [Concomitant]
     Active Substance: PREDNISONE
     Indication: PRODUCT USED FOR UNKNOWN INDICATION
     Dosage: UNK
  9. CERTOLIZUMAB PEGOL [Suspect]
     Active Substance: CERTOLIZUMAB PEGOL
     Dosage: 400 MG, EV 3 WEEKS, #NDC 50474070062
     Route: 058
     Dates: start: 20131011
  10. FLOVENT [Concomitant]
     Active Substance: FLUTICASONE PROPIONATE
     Dosage: 110 ?G, 2X/DAY (BID), 2 PUFFS INHALER
  11. VITAMIN B3 [Concomitant]
     Active Substance: NIACIN
     Dosage: UNK, ONCE DAILY (QD)
     Route: 048
  12. ASA [Concomitant]
     Active Substance: ASPIRIN
     Dosage: 82 MG ONCE DAILY AND 500 MG 3-4 TIMES IN A DAY
     Route: 048
  13. PROBIOTIC [Concomitant]
     Active Substance: PROBIOTICS NOS
     Dosage: 3 DF, 3X/DAY (TID)
     Route: 048
  14. LASIX [Concomitant]
     Active Substance: FUROSEMIDE
     Indication: UNEVALUABLE EVENT
     Dosage: 20 MG, ONCE DAILY (QD)
     Route: 048
  15. AMOXICILLIN. [Concomitant]
     Active Substance: AMOXICILLIN
     Dosage: UNK
     Dates: start: 201606, end: 201606
  16. MAGNESIUM [Concomitant]
     Active Substance: MAGNESIUM
     Indication: SUPPLEMENTATION THERAPY
     Dosage: UNK, DAILY
     Route: 048
  17. GABAPENTIN. [Concomitant]
     Active Substance: GABAPENTIN
     Indication: INTERVERTEBRAL DISC DEGENERATION
     Dosage: 300 MG, 3X/DAY (TID)
     Route: 048
     Dates: start: 201502
  18. MULTIVITAMIN [Concomitant]
     Active Substance: VITAMINS
     Indication: SUPPLEMENTATION THERAPY
     Dosage: UNK, DAILY
     Route: 048
  19. ACIDOPHILUS PROBIOTIC [Concomitant]
     Indication: CROHN^S DISEASE
     Dosage: UNK, DAILY
     Route: 048
  20. VITAMIN D3 [Concomitant]
     Active Substance: CHOLECALCIFEROL
     Indication: SUPPLEMENTATION THERAPY
     Dosage: 400 IU, ONCE DAILY (QD)
     Route: 048
  21. MELOXICAM. [Concomitant]
     Active Substance: MELOXICAM
     Indication: PAIN
     Dosage: 7.5 MG, 2X/DAY (BID)
     Route: 048
     Dates: start: 201604
  22. CERTOLIZUMAB PEGOL [Suspect]
     Active Substance: CERTOLIZUMAB PEGOL
     Indication: CROHN^S DISEASE
     Dosage: 200 MG, MONTHLY (QM)
     Route: 058
     Dates: start: 200911
  23. CERTOLIZUMAB PEGOL [Suspect]
     Active Substance: CERTOLIZUMAB PEGOL
     Indication: OFF LABEL USE
     Dosage: 400 MG, EV 4 WEEKS
     Dates: start: 20130710, end: 2013
  24. LISINOPRIL. [Concomitant]
     Active Substance: LISINOPRIL
     Dosage: 10 MG, UNK
     Route: 048
  25. IRON [Concomitant]
     Active Substance: IRON
     Indication: SUPPLEMENTATION THERAPY
  26. LIALDA [Concomitant]
     Active Substance: MESALAMINE
     Indication: CROHN^S DISEASE
     Dosage: 1.2 G, ONCE DAILY (QD)
     Route: 048
     Dates: start: 201605
  27. VITAMIN B12 [Concomitant]
     Active Substance: CYANOCOBALAMIN
     Indication: PRODUCT USED FOR UNKNOWN INDICATION
     Dosage: UNK, DAILY
     Route: 048
  28. CLOBETASOL [Concomitant]
     Active Substance: CLOBETASOL
     Indication: CELLULITIS
     Dosage: UNK, 2X/DAY (BID)
     Route: 061
  29. GARLIC. [Concomitant]
     Active Substance: GARLIC
     Indication: SUPPLEMENTATION THERAPY
     Dosage: DAILY
     Route: 048
  30. CERTOLIZUMAB PEGOL [Suspect]
     Active Substance: CERTOLIZUMAB PEGOL
     Indication: PSORIASIS
     Dosage: 400 MG, EV 4 WEEKS (EXP DATE: JAN-2018)
     Route: 058
     Dates: start: 20101204
  31. CERTOLIZUMAB PEGOL [Suspect]
     Active Substance: CERTOLIZUMAB PEGOL
     Dosage: 400 MG, EV 3 WEEKS, #NDC 50474070062 LOT NO# 902352, 31-JAN-2019, 3100023, JAN-2019
     Route: 058
     Dates: start: 20131011
  32. METFORMIN [Concomitant]
     Active Substance: METFORMIN HYDROCHLORIDE
     Dosage: 500 MG, 2X/DAY (BID)
     Route: 048
  33. FUROSEMIDE. [Concomitant]
     Active Substance: FUROSEMIDE
     Indication: FLUID RETENTION
     Dosage: 10 MG, 2X/DAY (BID)
     Route: 048
  34. TYLENOL EXTRA STRENGTH [Concomitant]
     Active Substance: ACETAMINOPHEN
     Indication: PRODUCT USED FOR UNKNOWN INDICATION
     Dosage: UNK, AS NEEDED (PRN)
     Route: 048
  35. FAMOTIDINE. [Concomitant]
     Active Substance: FAMOTIDINE
     Dosage: 20 MG, 2X/DAY (BID)
     Route: 048
  36. AMOXICILLIN. [Concomitant]
     Active Substance: AMOXICILLIN
     Indication: PRODUCT USED FOR UNKNOWN INDICATION
     Dosage: UNK
     Dates: start: 2016, end: 2016

REACTIONS (11)
  - Diarrhoea [Unknown]
  - Infection [Not Recovered/Not Resolved]
  - Basal cell carcinoma [Recovered/Resolved]
  - Cellulitis [Recovered/Resolved]
  - Skin papilloma [Recovering/Resolving]
  - Scar [Recovering/Resolving]
  - Intervertebral disc degeneration [Recovering/Resolving]
  - Malaise [Not Recovered/Not Resolved]
  - Fungal skin infection [Recovered/Resolved]
  - Off label use [Unknown]
  - Crohn^s disease [Unknown]

NARRATIVE: CASE EVENT DATE: 20131011
